FAERS Safety Report 17383374 (Version 1)
Quarter: 2020Q1

REPORT INFORMATION
  Report Type: Spontaneous
  Country: US (occurrence: US)
  Receive Date: 20200206
  Receipt Date: 20200206
  Transmission Date: 20200409
  Serious: No
  Sender: FDA-Public Use
  Company Number: US-ABBVIE-19K-163-2986406-00

PATIENT
  Age: 71 Year
  Sex: Male
  Weight: 141.65 kg

DRUGS (10)
  1. METHOTREXATE. [Concomitant]
     Active Substance: METHOTREXATE
     Indication: RHEUMATOID ARTHRITIS
  2. FOLIC ACID. [Concomitant]
     Active Substance: FOLIC ACID
     Indication: RHEUMATOID ARTHRITIS
  3. GABAPENTIN. [Concomitant]
     Active Substance: GABAPENTIN
     Indication: RHEUMATOID ARTHRITIS
  4. HUMIRA [Suspect]
     Active Substance: ADALIMUMAB
     Indication: RHEUMATOID ARTHRITIS
     Route: 058
     Dates: start: 20180912
  5. VITAMIN D [Concomitant]
     Active Substance: VITAMIN D NOS
     Indication: VITAMIN SUPPLEMENTATION
  6. LOSARTAN. [Concomitant]
     Active Substance: LOSARTAN
     Indication: HYPERTENSION
  7. JANUVIA [Concomitant]
     Active Substance: SITAGLIPTIN PHOSPHATE
     Indication: GLUCOSE TOLERANCE IMPAIRED
  8. AMLODIPINE [Concomitant]
     Active Substance: AMLODIPINE BESYLATE
     Indication: HYPERTENSION
  9. GLIPIZIDE. [Concomitant]
     Active Substance: GLIPIZIDE
     Indication: GLUCOSE TOLERANCE IMPAIRED
  10. METFORMIN [Concomitant]
     Active Substance: METFORMIN HYDROCHLORIDE
     Indication: GLUCOSE TOLERANCE IMPAIRED

REACTIONS (3)
  - Injection site haemorrhage [Recovered/Resolved]
  - Device issue [Recovered/Resolved]
  - Injection site injury [Recovered/Resolved]

NARRATIVE: CASE EVENT DATE: 20191025
